FAERS Safety Report 10222766 (Version 3)
Quarter: 2014Q2

REPORT INFORMATION
  Report Type: Spontaneous
  Country: US (occurrence: US)
  Receive Date: 20140606
  Receipt Date: 20140625
  Transmission Date: 20141212
  Serious: Yes (Death)
  Sender: FDA-Public Use
  Company Number: US-009507513-1406USA002959

PATIENT
  Age: 58 Year
  Sex: Female

DRUGS (6)
  1. TEMODAR [Suspect]
     Indication: BRAIN NEOPLASM
     Dosage: 200 MG, QD FOR 5 DAYS EVERY 28 DAYS
     Route: 048
     Dates: start: 20130610, end: 20140110
  2. DEXAMETHASONE [Concomitant]
  3. ZOFRAN [Concomitant]
  4. LORAZEPAM [Concomitant]
  5. KEPRA [Concomitant]
  6. BACTRIM [Concomitant]

REACTIONS (1)
  - Death [Fatal]
